FAERS Safety Report 7723814-9 (Version None)
Quarter: 2011Q3

REPORT INFORMATION
  Report Type: 
  Country: None (occurrence: None)
  Receive Date: 20110901
  Receipt Date: 20110824
  Transmission Date: 20111222
  Serious: Yes (Hospitalization, Other)
  Sender: FDA-Public Use
  Company Number: PHHY2011FR56093

PATIENT
  Sex: Male
  Weight: 70 kg

DRUGS (8)
  1. VERAPAMIL [Concomitant]
  2. CRESTOR [Concomitant]
  3. PREDNISONE [Concomitant]
     Dosage: 10 MG, DAILY
     Route: 048
     Dates: start: 20080101
  4. BLOOD TRANSFUSION, AUXILIARY PRODUCTS [Concomitant]
  5. METHOTREXATE SODIUM [Suspect]
     Indication: RHEUMATOID ARTHRITIS
     Dosage: 1 DF, PER WEEK
     Dates: start: 20080101, end: 20110228
  6. OMEPRAZOLE [Concomitant]
  7. ASPIRIN [Concomitant]
  8. EXJADE [Suspect]
     Indication: SERUM FERRITIN INCREASED
     Dosage: 20 MG/KG, DAILY
     Route: 048
     Dates: start: 20101122, end: 20110228

REACTIONS (3)
  - PANCYTOPENIA [None]
  - ANAEMIA [None]
  - THROMBOCYTOPENIA [None]
